FAERS Safety Report 13177633 (Version 1)
Quarter: 2017Q1

REPORT INFORMATION
  Report Type: Spontaneous
  Country: US (occurrence: US)
  Receive Date: 20170201
  Receipt Date: 20170201
  Transmission Date: 20170428
  Serious: Yes (Other)
  Sender: FDA-Public Use
  Company Number: US-SUNOVION-2017SUN000347

PATIENT

DRUGS (2)
  1. LATUDA [Suspect]
     Active Substance: LURASIDONE HYDROCHLORIDE
     Indication: PSYCHOTIC DISORDER
     Dosage: UNK
     Route: 048
  2. INVEGA [Concomitant]
     Active Substance: PALIPERIDONE

REACTIONS (7)
  - Suicide attempt [Unknown]
  - Mania [Unknown]
  - Anxiety [Unknown]
  - Insomnia [Unknown]
  - Suicidal ideation [Unknown]
  - Mood swings [Unknown]
  - Diarrhoea [Unknown]
